FAERS Safety Report 5619950-3 (Version None)
Quarter: 2008Q1

REPORT INFORMATION
  Report Type: 
  Country: None (occurrence: None)
  Receive Date: 20080208
  Receipt Date: 20080205
  Transmission Date: 20080703
  Serious: Yes (Other)
  Sender: FDA-Public Use
  Company Number: US-BRISTOL-MYERS SQUIBB COMPANY-12618526

PATIENT
  Age: 55 Year
  Sex: Female

DRUGS (7)
  1. ESTRACE [Suspect]
     Indication: HORMONE THERAPY
     Dates: start: 19930101, end: 19970101
  2. CARBOPLATIN [Suspect]
  3. PACLITAXEL [Suspect]
  4. PROVERA [Suspect]
     Indication: HORMONE THERAPY
     Dates: start: 19930101, end: 19970101
  5. MEDROXYPROGESTERONE ACETATE [Suspect]
     Indication: HORMONE THERAPY
     Dates: start: 19970101, end: 20000101
  6. PREFEST [Suspect]
     Indication: MENOPAUSE
     Dates: start: 20000101, end: 20010101
  7. GEMZAR [Suspect]

REACTIONS (6)
  - HAEMORRHAGE [None]
  - LUNG NEOPLASM [None]
  - MASS [None]
  - OVARIAN CANCER [None]
  - PELVIC MASS [None]
  - VAGINAL HAEMORRHAGE [None]
